FAERS Safety Report 10614659 (Version 2)
Quarter: 2014Q4

REPORT INFORMATION
  Report Type: Report from Study
  Country: AR (occurrence: AR)
  Receive Date: 20141130
  Receipt Date: 20141211
  Transmission Date: 20150529
  Serious: Yes (Hospitalization)
  Sender: FDA-Public Use
  Company Number: PHHY2014AR153711

PATIENT
  Sex: Female

DRUGS (1)
  1. ONBREZ [Suspect]
     Active Substance: INDACATEROL
     Indication: CHRONIC OBSTRUCTIVE PULMONARY DISEASE
     Dosage: 2 DF, QD
     Route: 055

REACTIONS (4)
  - Feeling abnormal [Recovered/Resolved]
  - Head injury [Recovered/Resolved]
  - Fatigue [Recovered/Resolved]
  - Accident [Recovered/Resolved]
